FAERS Safety Report 7385956-X (Version None)
Quarter: 2011Q1

REPORT INFORMATION
  Report Type: 
  Country: None (occurrence: None)
  Receive Date: 20110331
  Receipt Date: 20110323
  Transmission Date: 20110831
  Serious: Yes (Other)
  Sender: FDA-Public Use
  Company Number: US-SHIRE-SPV1-2011-00475

PATIENT
  Sex: Male

DRUGS (5)
  1. ELAPRASE [Suspect]
     Indication: MUCOPOLYSACCHARIDOSIS II
     Dosage: 24 MG, 1X/WEEK
     Route: 041
     Dates: start: 20061005
  2. SINGULAIR [Concomitant]
     Indication: HYPERSENSITIVITY
     Dosage: UNK, UNKNOWN
     Route: 065
     Dates: start: 20090807, end: 20110201
  3. BUDESONIDE [Concomitant]
     Indication: ASTHMA
     Dosage: UNK, UNKNOWN
     Route: 065
     Dates: start: 20090807
  4. MULTIVITAMIN                       /00097801/ [Concomitant]
     Indication: SUPPLEMENTATION THERAPY
     Dosage: UNK, UNKNOWN
     Route: 065
     Dates: start: 20080707
  5. ALBUTEROL [Concomitant]
     Indication: ASTHMA
     Dosage: UNK, UNKNOWN
     Route: 065
     Dates: start: 20090807

REACTIONS (1)
  - EOSINOPHIL COUNT INCREASED [None]
